FAERS Safety Report 21273354 (Version 3)
Quarter: 2023Q1

REPORT INFORMATION
  Report Type: Spontaneous
  Country: US (occurrence: US)
  Receive Date: 20220831
  Receipt Date: 20230118
  Transmission Date: 20230418
  Serious: Yes (Other)
  Sender: FDA-Public Use
  Company Number: US-BRISTOL-MYERS SQUIBB COMPANY-2022-094308

PATIENT
  Age: 74 Year
  Sex: Male
  Weight: 79.38 kg

DRUGS (1)
  1. REVLIMID [Suspect]
     Active Substance: LENALIDOMIDE
     Indication: Plasma cell myeloma
     Dosage: FREQUENCY: DAILY DAYS 1-14 EVERY 21 DAYS. (14 DAYS ON AND 7 DAYS OFF)
     Route: 048
     Dates: start: 20220815

REACTIONS (18)
  - Rib fracture [Unknown]
  - Fracture [Unknown]
  - Bone neoplasm [Unknown]
  - Abdominal discomfort [Unknown]
  - Fatigue [Not Recovered/Not Resolved]
  - Nausea [Unknown]
  - Off label use [Unknown]
  - Bone pain [Recovering/Resolving]
  - Dizziness [Recovering/Resolving]
  - Asthenia [Recovering/Resolving]
  - Insomnia [Recovering/Resolving]
  - Dyspnoea [Recovering/Resolving]
  - Dysphagia [Recovering/Resolving]
  - Dry throat [Recovering/Resolving]
  - Dehydration [Recovering/Resolving]
  - Somnolence [Recovering/Resolving]
  - Gait disturbance [Unknown]
  - Therapy non-responder [Unknown]
